FAERS Safety Report 9723226 (Version 2)
Quarter: 2015Q3

REPORT INFORMATION
  Report Type: Spontaneous
  Country: US (occurrence: US)
  Receive Date: 20131202
  Receipt Date: 20150727
  Transmission Date: 20151125
  Serious: Yes (Other)
  Sender: FDA-Public Use
  Company Number: US-GILEAD-2008-0018231

PATIENT
  Age: 49 Year
  Sex: Male

DRUGS (9)
  1. SUSTIVA [Concomitant]
     Active Substance: EFAVIRENZ
     Dates: start: 20080823
  2. RITONAVIR. [Concomitant]
     Active Substance: RITONAVIR
     Dates: end: 20080807
  3. RITONAVIR. [Concomitant]
     Active Substance: RITONAVIR
     Dates: start: 20080823
  4. LISINOPRIL. [Concomitant]
     Active Substance: LISINOPRIL
     Indication: HYPERTENSION
  5. DIOVAN [Concomitant]
     Active Substance: VALSARTAN
     Indication: HYPERTENSION
  6. TRUVADA [Suspect]
     Active Substance: EMTRICITABINE\TENOFOVIR DISOPROXIL FUMARATE
     Indication: HIV INFECTION
     Dates: start: 200703, end: 20080807
  7. DARUNAVIR [Concomitant]
     Active Substance: DARUNAVIR
     Dates: start: 20080823
  8. SUSTIVA [Concomitant]
     Active Substance: EFAVIRENZ
     Dates: end: 20080807
  9. DARUNAVIR [Concomitant]
     Active Substance: DARUNAVIR
     Dates: end: 20080807

REACTIONS (1)
  - Acute kidney injury [Unknown]

NARRATIVE: CASE EVENT DATE: 20080804
